FAERS Safety Report 7526000-0 (Version None)
Quarter: 2011Q2

REPORT INFORMATION
  Report Type: 
  Country: None (occurrence: None)
  Receive Date: 20110606
  Receipt Date: 20110526
  Transmission Date: 20111010
  Serious: Yes (Hospitalization, Other)
  Sender: FDA-Public Use
  Company Number: US-ASTRAZENECA-2011SE18183

PATIENT
  Age: 681 Month
  Sex: Male
  Weight: 102.1 kg

DRUGS (18)
  1. SEROQUEL [Suspect]
     Route: 048
     Dates: start: 20050101
  2. VITAMIN B3 [Concomitant]
     Route: 048
  3. ASPIRIN [Concomitant]
     Indication: CARDIAC DISORDER
     Route: 048
     Dates: start: 20110101, end: 20110101
  4. WELLBUTRIN [Concomitant]
  5. SEROQUEL [Suspect]
     Indication: DEPRESSION
     Route: 048
     Dates: start: 20010101, end: 20110101
  6. LISINOPRIL [Concomitant]
     Indication: HYPERTENSION
     Route: 048
     Dates: start: 20110101, end: 20110101
  7. PROPRANOLOL HYDROCHLORIDE [Concomitant]
     Indication: CARDIAC DISORDER
     Route: 048
     Dates: start: 20110101, end: 20110101
  8. SEROQUEL [Suspect]
     Route: 048
     Dates: start: 20050101
  9. BUPROPION HCL [Concomitant]
     Indication: DEPRESSION
     Route: 048
     Dates: start: 20110101, end: 20110101
  10. SEROQUEL [Suspect]
     Indication: BIPOLAR DISORDER
     Route: 048
     Dates: start: 20010101, end: 20110101
  11. DEPAKOTE [Concomitant]
     Dosage: TOTAL DAILY DOSE - 500 MG, TWO TIMES A DAY
     Route: 048
  12. VALPROEX [Concomitant]
     Route: 048
  13. CLONAZEPAM [Concomitant]
     Indication: DEPRESSION
     Dosage: TOTAL DAILY DOSE - 2.5 MG, TWO TIMES A DAY
     Route: 048
     Dates: start: 20110101, end: 20110101
  14. WARFARIN SODIUM [Concomitant]
  15. ASPIRIN [Concomitant]
     Indication: CEREBROVASCULAR ACCIDENT PROPHYLAXIS
     Route: 048
     Dates: start: 20110101, end: 20110101
  16. SEROQUEL [Suspect]
     Route: 048
     Dates: start: 20080101
  17. SEROQUEL [Suspect]
     Route: 048
     Dates: start: 20080101
  18. TRAZODONE HCL [Concomitant]
     Indication: DEPRESSION
     Route: 048
     Dates: start: 20110101, end: 20110101

REACTIONS (7)
  - ERECTILE DYSFUNCTION [None]
  - JOINT INJURY [None]
  - WEIGHT INCREASED [None]
  - LOWER LIMB FRACTURE [None]
  - THROMBOSIS [None]
  - PENILE OPERATION [None]
  - FALL [None]
